FAERS Safety Report 8408094-3 (Version None)
Quarter: 2012Q2

REPORT INFORMATION
  Report Type: 
  Country: None (occurrence: None)
  Receive Date: 20120601
  Receipt Date: 20120601
  Transmission Date: 20120825
  Serious: Yes (Other)
  Sender: FDA-Public Use
  Company Number: None

PATIENT
  Sex: Female
  Weight: 87.9978 kg

DRUGS (2)
  1. LANSOPRAZOLE [Suspect]
     Indication: GASTRIC PH DECREASED
     Dosage: 1 CAPSULE 1 DAILY
     Dates: start: 20120301
  2. LANSOPRAZOLE [Suspect]
     Indication: GASTRIC PH DECREASED
     Dosage: 1 CAPSULE 1 DAILY
     Dates: start: 20120201

REACTIONS (8)
  - DYSPNOEA [None]
  - DYSPHAGIA [None]
  - FLATULENCE [None]
  - CHEST PAIN [None]
  - FATIGUE [None]
  - DIZZINESS [None]
  - RASH [None]
  - PRURITUS [None]
